FAERS Safety Report 13804304 (Version 5)
Quarter: 2018Q1

REPORT INFORMATION
  Report Type: Spontaneous
  Country: JP (occurrence: JP)
  Receive Date: 20170728
  Receipt Date: 20180117
  Transmission Date: 20180508
  Serious: Yes (Death, Life-Threatening, Hospitalization)
  Sender: FDA-Public Use
  Company Number: JP-AMGEN-JPNSP2017114238

PATIENT
  Age: 7 Decade
  Sex: Female
  Weight: 38 kg

DRUGS (8)
  1. G-LASTA [Suspect]
     Active Substance: PEGFILGRASTIM
     Indication: COLONY STIMULATING FACTOR PROPHYLAXIS
     Dosage: 3.6 MG, 1X/2WEEKS
     Route: 058
     Dates: start: 20160226, end: 20160325
  2. ZOSYN [Concomitant]
     Active Substance: PIPERACILLIN SODIUM\TAZOBACTAM SODIUM
     Indication: SKIN INFECTION
     Dosage: UNK
     Route: 042
     Dates: start: 20160521, end: 20160603
  3. PACLITAXEL. [Suspect]
     Active Substance: PACLITAXEL
     Indication: BREAST CANCER
     Dosage: 110 MG, 1X/WEEK
     Route: 041
     Dates: start: 20160405, end: 20160517
  4. HERCEPTIN [Concomitant]
     Active Substance: TRASTUZUMAB
     Indication: BREAST CANCER
     Dosage: 280 MG, 1X/3WEEKS
     Route: 042
     Dates: start: 20160405, end: 20160517
  5. GASTER [Concomitant]
     Active Substance: FAMOTIDINE
     Indication: ADVERSE REACTION
     Dosage: 20 MG, 1X/WEEK
     Route: 042
     Dates: start: 20160405, end: 20160517
  6. DECADRON [Concomitant]
     Active Substance: DEXAMETHASONE
     Indication: ADVERSE REACTION
     Dosage: 1.65 MG, 1X/WEEK
     Route: 042
     Dates: start: 20160405, end: 20160517
  7. SULBACILLIN [Concomitant]
     Active Substance: AMPICILLIN SODIUM\SULBACTAM SODIUM
     Indication: MASTITIS
     Dosage: UNK
     Route: 042
     Dates: start: 20160607
  8. RESTAMIN                           /00000401/ [Concomitant]
     Active Substance: DIPHENHYDRAMINE
     Indication: ADVERSE REACTION
     Dosage: 10 MG, 1X/WEEK
     Route: 048
     Dates: start: 20160405, end: 20160517

REACTIONS (4)
  - Interstitial lung disease [Fatal]
  - Disseminated intravascular coagulation [Not Recovered/Not Resolved]
  - Sepsis [Not Recovered/Not Resolved]
  - Skin infection [Not Recovered/Not Resolved]

NARRATIVE: CASE EVENT DATE: 20160521
